FAERS Safety Report 20854111 (Version 1)
Quarter: 2022Q2

REPORT INFORMATION
  Report Type: Other
  Country: AU (occurrence: None)
  Receive Date: 20220520
  Receipt Date: 20220520
  Transmission Date: 20220721
  Serious: Yes (Death)
  Sender: FDA-Public Use
  Company Number: AU-Merck Healthcare KGaA-9322756

PATIENT
  Age: 79 Year
  Sex: Male

DRUGS (1)
  1. AVELUMAB [Suspect]
     Active Substance: AVELUMAB
     Indication: Neuroendocrine carcinoma of the skin

REACTIONS (3)
  - Death [Fatal]
  - Disease progression [Unknown]
  - Fatigue [Unknown]

NARRATIVE: CASE EVENT DATE: 20200801
